FAERS Safety Report 19623441 (Version 1)
Quarter: 2021Q3

REPORT INFORMATION
  Report Type: Spontaneous
  Country: DZ (occurrence: DZ)
  Receive Date: 20210728
  Receipt Date: 20210728
  Transmission Date: 20211014
  Serious: Yes (Other)
  Sender: FDA-Public Use
  Company Number: DZ-AMGEN-DZASP2021108947

PATIENT
  Age: 51 Year
  Sex: Female
  Weight: 40 kg

DRUGS (2)
  1. VECTIBIX [Suspect]
     Active Substance: PANITUMUMAB
     Indication: COLORECTAL CANCER METASTATIC
     Dosage: 6 MILLIGRAM, Q2WK
     Route: 065
  2. XELOX [Concomitant]
     Active Substance: CAPECITABINE\OXALIPLATIN
     Dosage: UNK
     Dates: start: 20210426

REACTIONS (5)
  - Malignant neoplasm progression [Unknown]
  - Subileus [Unknown]
  - Fatigue [Unknown]
  - Mucosal inflammation [Recovering/Resolving]
  - Emphysema [Unknown]

NARRATIVE: CASE EVENT DATE: 2021
